FAERS Safety Report 5302165-6 (Version None)
Quarter: 2007Q2

REPORT INFORMATION
  Report Type: 
  Country: None (occurrence: None)
  Receive Date: 20070413
  Receipt Date: 20070328
  Transmission Date: 20071010
  Serious: Yes (Other)
  Sender: FDA-Public Use
  Company Number: 8022984

PATIENT

DRUGS (1)
  1. THEOPHYLLINE [Suspect]

REACTIONS (5)
  - CONVULSION [None]
  - DRUG INEFFECTIVE [None]
  - GRAND MAL CONVULSION [None]
  - PARTIAL SEIZURES [None]
  - STATUS EPILEPTICUS [None]
